FAERS Safety Report 10037565 (Version 1)
Quarter: 2014Q1

REPORT INFORMATION
  Report Type: Spontaneous
  Country: US (occurrence: None)
  Receive Date: 20140324
  Receipt Date: 20140324
  Transmission Date: 20141002
  Serious: Yes (Hospitalization)
  Sender: FDA-Public Use
  Company Number: UTC-046008

PATIENT
  Age: 51 Year
  Sex: Female
  Weight: 72.57 kg

DRUGS (2)
  1. REMODULIN (2.5 MILLIGRAM/MILLILITERS, INJECTION FOR INFUSION) (TREPROSTINIL SODIUM) [Suspect]
     Indication: COR PULMONALE CHRONIC
     Dosage: (0.05 UG/KG, 1 IN 1 MIN)
     Route: 041
     Dates: start: 20130709
  2. REVATIO (SILDENAFIL) (UNKNOWN) [Concomitant]

REACTIONS (3)
  - Weight decreased [None]
  - Decreased appetite [None]
  - Diarrhoea [None]
